FAERS Safety Report 9268314 (Version 3)
Quarter: 2013Q3

REPORT INFORMATION
  Report Type: Report from Study
  Country: BR (occurrence: BR)
  Receive Date: 20130502
  Receipt Date: 20130709
  Transmission Date: 20140515
  Serious: No
  Sender: FDA-Public Use
  Company Number: BR-ELI_LILLY_AND_COMPANY-BR201304003397

PATIENT
  Age: 68 Year
  Sex: Female
  Weight: 59 kg

DRUGS (14)
  1. TERIPARATIDE [Suspect]
     Indication: OSTEOPOROSIS
     Dosage: 20 UG, QD
     Route: 058
     Dates: start: 20130410
  2. ENALPRIN [Concomitant]
     Indication: HYPERTENSION
     Dosage: 40 MG, EACH MORNING
     Route: 065
     Dates: start: 1988
  3. NIFEDIPINA [Concomitant]
     Indication: HYPERTENSION
     Dosage: 20 MG, UNK
     Route: 065
     Dates: start: 1998
  4. HIDROCLOROTIAZIDA [Concomitant]
     Indication: HYPERTENSION
     Dosage: 25 MG, UNKNOWN
     Route: 065
  5. ATENOLOL [Concomitant]
     Indication: HYPERTENSION
     Dosage: 100 MG, QID
     Route: 065
     Dates: start: 1998
  6. AAS [Concomitant]
     Indication: ANTICOAGULANT THERAPY
     Dosage: 700 MG, QD
     Dates: start: 2003
  7. SINVASTATINA [Concomitant]
     Indication: BLOOD CHOLESTEROL
     Dosage: 10 MG, UNKNOWN
     Route: 065
     Dates: start: 2003
  8. RIVOTRIL [Concomitant]
     Indication: SOMNOLENCE
     Dosage: 2 MG, UNK
     Route: 065
     Dates: start: 2008
  9. SODIUM CARBONATE [Concomitant]
     Indication: OSTEOPOROSIS
     Dosage: 600 MG, UNKNOWN
     Route: 065
  10. CALCIUM CARBONATE [Concomitant]
     Indication: OSTEOPOROSIS
     Dosage: 400 MG, UNKNOWN
     Route: 065
  11. VITAMIN D3 [Concomitant]
     Indication: OSTEOPOROSIS
     Dosage: 400 MG, UNKNOWN
     Route: 065
  12. VITAMIN D3 [Concomitant]
     Dosage: 600 MG, UNKNOWN
     Route: 065
  13. GLUCOSAMINA [Concomitant]
     Indication: OSTEOPOROSIS
     Dosage: UNK, UNKNOWN
     Route: 065
  14. DIOSMIN W/HESPERIDIN [Concomitant]
     Indication: OEDEMA
     Dosage: 500 MG, UNKNOWN
     Route: 065

REACTIONS (6)
  - Headache [Recovered/Resolved]
  - Hyperaemia [Recovered/Resolved]
  - Hypertension [Recovered/Resolved]
  - Application site haemorrhage [Recovering/Resolving]
  - Application site bruise [Recovering/Resolving]
  - Nausea [Recovered/Resolved]
